FAERS Safety Report 25826779 (Version 2)
Quarter: 2025Q3

REPORT INFORMATION
  Report Type: Spontaneous
  Country: US (occurrence: US)
  Receive Date: 20250920
  Receipt Date: 20250924
  Transmission Date: 20251020
  Serious: No
  Sender: ABBVIE
  Company Number: US-ABBVIE-6467065

PATIENT
  Sex: Male

DRUGS (1)
  1. RISANKIZUMAB [Suspect]
     Active Substance: RISANKIZUMAB
     Indication: Crohn^s disease
     Route: 058

REACTIONS (1)
  - Product storage error [Unknown]
